FAERS Safety Report 9307093 (Version 1)
Quarter: 2013Q2

REPORT INFORMATION
  Report Type: Spontaneous
  Country: US (occurrence: US)
  Receive Date: 20130523
  Receipt Date: 20130523
  Transmission Date: 20140414
  Serious: Yes (Other)
  Sender: FDA-Public Use
  Company Number: US-ROCHE-1224944

PATIENT
  Age: 66 Year
  Sex: Female

DRUGS (17)
  1. NAPROSYN [Suspect]
     Indication: PRODUCT USED FOR UNKNOWN INDICATION
     Route: 065
  2. PREMARIN [Suspect]
     Indication: POSTMENOPAUSE
     Route: 048
     Dates: start: 200611
  3. VICODIN [Concomitant]
     Dosage: 5 MG TO 500 MG, PT TO MAKE APPT
     Route: 065
  4. GEMFIBROZIL [Concomitant]
     Route: 065
  5. HYDROCHLOROTHIAZIDE [Concomitant]
     Route: 065
  6. METHOCARBAMOL [Concomitant]
     Dosage: 1 TO 2 TABLETS BY MOUTH FOUR TIMES A DAY AS NEEDED FOR NECK PAIN
     Route: 065
  7. TRAZODONE HCL [Concomitant]
     Dosage: 1 TABLET EVERY EVENING AS NEEDED FOR SLEEP
     Route: 065
  8. ATENOLOL [Concomitant]
     Route: 065
  9. LOSARTAN POTASSIUM [Concomitant]
     Route: 065
  10. NITROGLYCERINE [Concomitant]
     Dosage: TAKE AS DIRECTED, 1 TABLET UNDER TONGUE AS NEEDED FOR CHEST PAIN, MAY REPEAT EVERY 5 MIN X 3OR UNTIL
     Route: 065
  11. FLUTICASONE PROPIONATE [Concomitant]
     Dosage: 50 MCG, SPRAY 1 SPRAY BY INTRANASAL ROUTE EVERY DAY IN EACH NOSTRIL
     Route: 065
  12. ENALAPRIL MALEATE [Concomitant]
     Route: 065
  13. VALACYCLOVIR HYDROCHLORIDE [Concomitant]
     Route: 065
  14. SODIUM IODIDE [Concomitant]
     Route: 065
  15. POVIDONE IODINE [Concomitant]
  16. POTASSIUM IODIDE [Concomitant]
  17. IODOFORM [Concomitant]

REACTIONS (2)
  - Hypersensitivity [Unknown]
  - Intracranial aneurysm [Recovering/Resolving]
